FAERS Safety Report 17847332 (Version 1)
Quarter: 2020Q2

REPORT INFORMATION
  Report Type: Report from Study
  Country: CA (occurrence: CA)
  Receive Date: 20200601
  Receipt Date: 20200601
  Transmission Date: 20200714
  Serious: Yes (Other)
  Sender: FDA-Public Use
  Company Number: CA-ROCHE-2607702

PATIENT
  Sex: Female

DRUGS (11)
  1. CELLCEPT [Suspect]
     Active Substance: MYCOPHENOLATE MOFETIL\MYCOPHENOLATE MOFETIL HYDROCHLORIDE
     Indication: FIBROSIS
     Route: 065
     Dates: end: 2013
  2. RISEDRONATE [Concomitant]
     Active Substance: RISEDRONATE SODIUM
  3. RISPERIDONE. [Concomitant]
     Active Substance: RISPERIDONE
  4. SULFATRIM [Concomitant]
     Active Substance: SULFAMETHOXAZOLE\TRIMETHOPRIM
  5. RITUXAN [Suspect]
     Active Substance: RITUXIMAB
     Indication: FIBROSIS
     Dosage: DAY 1, DAY 15. FIRST PIR RECEIVED 25-OCT-2018
     Route: 042
     Dates: start: 20170727
  6. SOLU-MEDROL [Concomitant]
     Active Substance: METHYLPREDNISOLONE SODIUM SUCCINATE
     Route: 042
     Dates: start: 20181025
  7. TYLENOL [Concomitant]
     Active Substance: ACETAMINOPHEN
     Route: 048
     Dates: start: 20181025
  8. PREDNISONE. [Concomitant]
     Active Substance: PREDNISONE
     Route: 065
  9. BENADRYL [Concomitant]
     Active Substance: DIPHENHYDRAMINE HYDROCHLORIDE
     Route: 048
     Dates: start: 20181025
  10. CALCIUM CARBONATE;COLECALCIFEROL [Concomitant]
     Active Substance: CALCIUM CARBONATE\CHOLECALCIFEROL
  11. PANTOPRAZOLE [Concomitant]
     Active Substance: PANTOPRAZOLE

REACTIONS (2)
  - Drug ineffective [Unknown]
  - Disease progression [Unknown]
